FAERS Safety Report 21748112 (Version 2)
Quarter: 2024Q3

REPORT INFORMATION
  Report Type: Spontaneous
  Country: TW (occurrence: TW)
  Receive Date: 20221219
  Receipt Date: 20240904
  Transmission Date: 20241017
  Serious: Yes (Other)
  Sender: PFIZER
  Company Number: TW-PFIZER INC-PV202200124177

PATIENT
  Sex: Female

DRUGS (4)
  1. IBRANCE [Suspect]
     Active Substance: PALBOCICLIB
     Dosage: 125 MG, QD
     Route: 048
     Dates: start: 20221105
  2. MOSAPULIN [Concomitant]
     Dosage: 1 DF, TID
  3. TRACETON [Concomitant]
     Dosage: 1 DF HS
  4. FEMARA [Concomitant]
     Active Substance: LETROZOLE
     Dosage: 1 DF, QD

REACTIONS (2)
  - Agranulocytosis [Unknown]
  - Neoplasm progression [Unknown]
